FAERS Safety Report 25314734 (Version 4)
Quarter: 2025Q2

REPORT INFORMATION
  Report Type: Report from Study
  Country: US (occurrence: US)
  Receive Date: 20250514
  Receipt Date: 20250609
  Transmission Date: 20250716
  Serious: Yes (Other)
  Sender: MALLINCKRODT
  Company Number: US-MALLINCKRODT-MNK202502802

PATIENT
  Sex: Male

DRUGS (4)
  1. CORTICOTROPIN [Suspect]
     Active Substance: CORTICOTROPIN
     Indication: Rheumatoid arthritis
     Route: 058
     Dates: start: 20250502
  2. MORNIFLUMATE [Concomitant]
     Active Substance: MORNIFLUMATE
  3. BACTRIM [Concomitant]
     Active Substance: SULFAMETHOXAZOLE\TRIMETHOPRIM
  4. FOLIC ACID [Concomitant]
     Active Substance: FOLIC ACID

REACTIONS (11)
  - Autoimmune disorder [Unknown]
  - Impaired work ability [Unknown]
  - Bone pain [Unknown]
  - Arthralgia [Unknown]
  - Urinary tract disorder [Unknown]
  - Visual impairment [Unknown]
  - Blood glucose abnormal [Unknown]
  - Injection site pain [Unknown]
  - Depression [Unknown]
  - Fatigue [Unknown]
  - Incorrect dose administered [Unknown]
